FAERS Safety Report 24218585 (Version 6)
Quarter: 2024Q4

REPORT INFORMATION
  Report Type: Spontaneous
  Country: US (occurrence: US)
  Receive Date: 20240816
  Receipt Date: 20241108
  Transmission Date: 20250115
  Serious: Yes (Other)
  Sender: LUNDBECK
  Company Number: US-LUNDBECK-DKLU4002901

PATIENT

DRUGS (4)
  1. VYEPTI [Suspect]
     Active Substance: EPTINEZUMAB-JJMR
     Indication: Migraine
     Dosage: 100 MILLIGRAM
     Route: 041
     Dates: start: 20240823
  2. OMNIPEN [AMPICILLIN SODIUM] [Concomitant]
     Indication: Product used for unknown indication
  3. KLONOPIN [Concomitant]
     Active Substance: CLONAZEPAM
     Indication: Product used for unknown indication
  4. ACETAMINOPHEN\OXYCODONE HYDROCHLORIDE\OXYCODONE TEREPHTHALATE [Concomitant]
     Active Substance: ACETAMINOPHEN\OXYCODONE HYDROCHLORIDE\OXYCODONE TEREPHTHALATE
     Indication: Product used for unknown indication

REACTIONS (8)
  - Neuropathy peripheral [Unknown]
  - Drug ineffective [Recovering/Resolving]
  - Product dose omission issue [Unknown]
  - Migraine [Recovering/Resolving]
  - Dizziness [Unknown]
  - Memory impairment [Unknown]
  - Disturbance in attention [Unknown]
  - Contusion [Unknown]
